FAERS Safety Report 8321126-6 (Version None)
Quarter: 2012Q2

REPORT INFORMATION
  Report Type: 
  Country: None (occurrence: None)
  Receive Date: 20120430
  Receipt Date: 20120419
  Transmission Date: 20120825
  Serious: Yes (Other)
  Sender: FDA-Public Use
  Company Number: US-JNJFOC-20120408851

PATIENT
  Age: 10 Year
  Sex: Male

DRUGS (5)
  1. METHYLPHENIDATE HCL [Suspect]
     Route: 048
  2. METHYLPHENIDATE HCL [Suspect]
     Route: 048
  3. CONCERTA [Suspect]
     Indication: PRODUCT USED FOR UNKNOWN INDICATION
     Route: 048
  4. METHYLPHENIDATE HCL [Suspect]
     Route: 048
  5. METHYLPHENIDATE HCL [Suspect]
     Indication: PRODUCT USED FOR UNKNOWN INDICATION
     Route: 048

REACTIONS (10)
  - INSOMNIA [None]
  - HYPERSENSITIVITY [None]
  - AGGRESSION [None]
  - OVERDOSE [None]
  - ABDOMINAL SYMPTOM [None]
  - GROWTH RETARDATION [None]
  - EATING DISORDER [None]
  - WEIGHT DECREASED [None]
  - ABNORMAL BEHAVIOUR [None]
  - THERAPEUTIC RESPONSE DECREASED [None]
